FAERS Safety Report 6646736-3 (Version None)
Quarter: 2010Q1

REPORT INFORMATION
  Report Type: 
  Country: None (occurrence: None)
  Receive Date: 20100323
  Receipt Date: 20100309
  Transmission Date: 20100710
  Serious: Yes (Other)
  Sender: FDA-Public Use
  Company Number: DE-CELGENEUS-062-50794-10020935

PATIENT
  Age: 74 Year
  Sex: Male
  Weight: 74 kg

DRUGS (3)
  1. VIDAZA [Suspect]
     Indication: MYELODYSPLASTIC SYNDROME
     Route: 058
     Dates: start: 20090501
  2. VIDAZA [Suspect]
     Route: 058
     Dates: start: 20100111
  3. VIDAZA [Suspect]
     Dosage: DOSE REDUCED TO 90%
     Route: 058
     Dates: start: 20100308

REACTIONS (2)
  - CARDIAC FAILURE [None]
  - PLEURAL EFFUSION [None]
